FAERS Safety Report 4855033-8 (Version None)
Quarter: 2005Q4

REPORT INFORMATION
  Report Type: 
  Country: None (occurrence: None)
  Receive Date: 20051214
  Receipt Date: 20051202
  Transmission Date: 20060501
  Serious: Yes (Hospitalization)
  Sender: FDA-Public Use
  Company Number: 2005159756

PATIENT
  Age: 62 Year
  Sex: Male

DRUGS (1)
  1. CABERGOLINE [Suspect]
     Indication: RESTLESS LEGS SYNDROME
     Dosage: (2 MG), ORAL
     Route: 048
     Dates: start: 20040101, end: 20051122

REACTIONS (3)
  - ANGINA UNSTABLE [None]
  - CAROTID ARTERY ATHEROMA [None]
  - HYPERTENSIVE CRISIS [None]
